FAERS Safety Report 20092232 (Version 1)
Quarter: 2021Q4

REPORT INFORMATION
  Report Type: Spontaneous
  Country: US (occurrence: None)
  Receive Date: 20211119
  Receipt Date: 20211119
  Transmission Date: 20220303
  Serious: Yes (Other)
  Sender: FDA-Public Use
  Company Number: None

PATIENT
  Age: 77 Year
  Sex: Female
  Weight: 79.65 kg

DRUGS (1)
  1. DOTAREM [Suspect]
     Active Substance: GADOTERATE MEGLUMINE
     Indication: Scan with contrast
     Dosage: OTHER FREQUENCY : UPON SCAN 1 TIME;?
     Route: 042

REACTIONS (3)
  - Sneezing [None]
  - Dysphonia [None]
  - Injection related reaction [None]

NARRATIVE: CASE EVENT DATE: 20211118
